FAERS Safety Report 7169135-7 (Version None)
Quarter: 2010Q4

REPORT INFORMATION
  Report Type: 
  Country: None (occurrence: None)
  Receive Date: 20101216
  Receipt Date: 20100115
  Transmission Date: 20110411
  Serious: No
  Sender: FDA-Public Use
  Company Number: US-AMGEN-KDL386368

PATIENT

DRUGS (1)
  1. ENBREL [Suspect]
     Indication: ANKYLOSING SPONDYLITIS
     Dosage: 50 MG, QWK
     Route: 058
     Dates: start: 20040319

REACTIONS (8)
  - ARTHRALGIA [None]
  - EYE PRURITUS [None]
  - HYPERSENSITIVITY [None]
  - INGROWN HAIR [None]
  - LOCALISED INFECTION [None]
  - SINUS CONGESTION [None]
  - SINUSITIS [None]
  - SPLINTER [None]
